FAERS Safety Report 21171744 (Version 2)
Quarter: 2022Q3

REPORT INFORMATION
  Report Type: Report from Study
  Country: BE (occurrence: BE)
  Receive Date: 20220804
  Receipt Date: 20220805
  Transmission Date: 20221027
  Serious: Yes (Hospitalization)
  Sender: FDA-Public Use
  Company Number: BE-KOREA IPSEN Pharma-2022-21977

PATIENT
  Age: 83 Year
  Sex: Female

DRUGS (2)
  1. LANREOTIDE ACETATE [Suspect]
     Active Substance: LANREOTIDE ACETATE
     Indication: Acromegaly
     Route: 058
     Dates: start: 20220624
  2. PANTHOMED [Concomitant]
     Dosage: : 20 MG X 1X/DAG

REACTIONS (5)
  - Nausea [Recovering/Resolving]
  - Abdominal pain [Recovered/Resolved]
  - Syncope [Recovered/Resolved]
  - Haematochezia [Recovering/Resolving]
  - Hyperhidrosis [Recovered/Resolved]

NARRATIVE: CASE EVENT DATE: 20220709
